FAERS Safety Report 8221039-4 (Version None)
Quarter: 2012Q1

REPORT INFORMATION
  Report Type: 
  Country: None (occurrence: None)
  Receive Date: 20120313
  Receipt Date: 20120305
  Transmission Date: 20120608
  Serious: Yes (Other)
  Sender: FDA-Public Use
  Company Number: 2011SP057262

PATIENT
  Age: 25 Year
  Sex: Female
  Weight: 54.4316 kg

DRUGS (2)
  1. IMPLANON [Suspect]
     Indication: CONTRACEPTION
     Dates: start: 20110317
  2. FLUOXETINE HCL [Concomitant]

REACTIONS (8)
  - CHEST PAIN [None]
  - PAIN IN EXTREMITY [None]
  - EAR PAIN [None]
  - PELVIC PAIN [None]
  - VISUAL IMPAIRMENT [None]
  - DIZZINESS [None]
  - NECK PAIN [None]
  - OROPHARYNGEAL PAIN [None]
